FAERS Safety Report 5888363-1 (Version None)
Quarter: 2008Q3

REPORT INFORMATION
  Report Type: 
  Country: None (occurrence: None)
  Receive Date: 20080918
  Receipt Date: 20080908
  Transmission Date: 20090109
  Serious: Yes (Death, Other)
  Sender: FDA-Public Use
  Company Number: US-TEVA-177217USA

PATIENT
  Age: 61 Year
  Sex: Male

DRUGS (5)
  1. CYCLOSPORINE [Suspect]
  2. METHYLPREDNISOLONE 16MG TAB [Suspect]
  3. PREDNISONE TAB [Suspect]
  4. MYCOPHENOLATE MOFETIL [Suspect]
  5. ORTHOCLONE OKT3 [Suspect]

REACTIONS (2)
  - EPSTEIN-BARR VIRUS ASSOCIATED LYMPHOPROLIFERATIVE DISORDER [None]
  - TRANSPLANT REJECTION [None]
